FAERS Safety Report 5464439-8 (Version None)
Quarter: 2007Q3

REPORT INFORMATION
  Report Type: 
  Country: None (occurrence: None)
  Receive Date: 20070921
  Receipt Date: 20070911
  Transmission Date: 20080115
  Serious: Yes (Other)
  Sender: FDA-Public Use
  Company Number: US-SANOFI-SYNTHELABO-A03200702221

PATIENT
  Sex: Female
  Weight: 83.5 kg

DRUGS (6)
  1. PLAVIX [Suspect]
     Indication: CEREBROVASCULAR ACCIDENT
     Route: 048
     Dates: start: 20000101, end: 20060101
  2. PLAVIX [Suspect]
     Indication: TRANSIENT ISCHAEMIC ATTACK
     Route: 048
     Dates: start: 20000101, end: 20060101
  3. PLAVIX [Suspect]
     Indication: COORDINATION ABNORMAL
     Route: 048
     Dates: start: 20000101, end: 20060101
  4. PLAVIX [Suspect]
     Route: 048
     Dates: start: 20060101
  5. PLAVIX [Suspect]
     Route: 048
     Dates: start: 20060101
  6. PLAVIX [Suspect]
     Route: 048
     Dates: start: 20060101

REACTIONS (3)
  - INJURY [None]
  - LOSS OF CONSCIOUSNESS [None]
  - SYNCOPE [None]
